FAERS Safety Report 8076602-0 (Version None)
Quarter: 2012Q1

REPORT INFORMATION
  Report Type: 
  Country: None (occurrence: None)
  Receive Date: 20120127
  Receipt Date: 20120118
  Transmission Date: 20120608
  Serious: Yes (Hospitalization)
  Sender: FDA-Public Use
  Company Number: JP-ELI_LILLY_AND_COMPANY-JP201201005364

PATIENT
  Age: 75 Year
  Sex: Female

DRUGS (14)
  1. CODEINE PHOSPHATE [Concomitant]
     Dosage: 60 MG, UNK
     Route: 048
  2. FAMOTIDINE [Concomitant]
     Dosage: 20 MG, UNK
     Route: 048
  3. ALIMTA [Suspect]
     Indication: LUNG ADENOCARCINOMA
     Dosage: UNK
     Route: 042
     Dates: start: 20101129
  4. PANVITAN [Concomitant]
     Dosage: 1 G, UNK
     Route: 048
  5. LAXOBERON [Concomitant]
     Dosage: UNK, PRN
     Route: 048
  6. SEVEN EP [Concomitant]
     Dosage: 1 DF, UNK
     Route: 048
  7. DEXTROMETHORPHAN HYDROBROMIDE [Concomitant]
     Dosage: 45 MG, UNK
     Route: 048
  8. EMEND [Concomitant]
     Dosage: 125 MG, UNK
     Route: 048
  9. CISPLATIN [Concomitant]
     Indication: LUNG ADENOCARCINOMA
     Dosage: UNK
     Route: 065
     Dates: start: 20101129
  10. STROCAIN [Concomitant]
     Dosage: 15 MG, UNK
     Route: 048
  11. SELBEX [Concomitant]
     Dosage: 1.5 G, UNK
     Route: 048
  12. MAGNESIUM SULFATE [Concomitant]
     Dosage: 750 MG, UNK
     Route: 048
  13. ZOLPIDEM [Concomitant]
     Dosage: 5 MG, PRN
     Route: 048
  14. METFORMIN HCL [Concomitant]
     Dosage: 45 MG, UNK
     Route: 048

REACTIONS (3)
  - DECREASED APPETITE [None]
  - NAUSEA [None]
  - HYPONATRAEMIA [None]
